FAERS Safety Report 24386055 (Version 1)
Quarter: 2024Q4

REPORT INFORMATION
  Report Type: Spontaneous
  Country: US (occurrence: US)
  Receive Date: 20241001
  Receipt Date: 20241001
  Transmission Date: 20250115
  Serious: Yes (Other)
  Sender: JAZZ
  Company Number: US-JAZZ PHARMACEUTICALS-2024-US-016277

PATIENT
  Age: 38 Year
  Sex: Female

DRUGS (2)
  1. EPIDIOLEX [Suspect]
     Active Substance: CANNABIDIOL
     Indication: Product used for unknown indication
     Dosage: 11.8 MILLILITER
  2. EPIDIOLEX [Suspect]
     Active Substance: CANNABIDIOL
     Dosage: 8 MILLILITER

REACTIONS (11)
  - Breast mass [Unknown]
  - Ileus paralytic [Unknown]
  - Hepatic failure [Unknown]
  - Seizure [Recovered/Resolved]
  - Respiratory disorder [Unknown]
  - Aphasia [Recovered/Resolved]
  - Weight decreased [Recovered/Resolved]
  - Decreased appetite [Unknown]
  - Screaming [Unknown]
  - Therapeutic response unexpected [Recovering/Resolving]
  - Product administration interrupted [Unknown]

NARRATIVE: CASE EVENT DATE: 20230101
